FAERS Safety Report 25649793 (Version 1)
Quarter: 2025Q3

REPORT INFORMATION
  Report Type: Spontaneous
  Country: ZA (occurrence: ZA)
  Receive Date: 20250806
  Receipt Date: 20250806
  Transmission Date: 20251020
  Serious: Yes (Hospitalization)
  Sender: SANOFI AVENTIS
  Company Number: ZA-SA-2025SA228163

PATIENT
  Sex: Female

DRUGS (2)
  1. LEFLUNOMIDE [Suspect]
     Active Substance: LEFLUNOMIDE
     Dates: start: 202311
  2. SULFASALAZINE [Suspect]
     Active Substance: SULFASALAZINE
     Dates: start: 202301, end: 202311

REACTIONS (1)
  - Sacroiliitis [Unknown]
